FAERS Safety Report 16606506 (Version 1)
Quarter: 2019Q3

REPORT INFORMATION
  Report Type: Other
  Country: AU (occurrence: AU)
  Receive Date: 20190722
  Receipt Date: 20190722
  Transmission Date: 20191004
  Serious: Yes (Life-Threatening, Hospitalization, Other)
  Sender: FDA-Public Use
  Company Number: AU-VISTAPHARM, INC.-VER201907-000620

PATIENT
  Age: 57 Year
  Sex: Male

DRUGS (2)
  1. PREDNISOLONE. [Suspect]
     Active Substance: PREDNISOLONE
     Indication: DECREASED APPETITE
     Dosage: 10 MG
  2. PREDNISOLONE. [Suspect]
     Active Substance: PREDNISOLONE
     Dosage: 20 MG (SELF INCREASED DOSE FOR PRECEDING 3 MONTHS)

REACTIONS (5)
  - Drug abuse [Unknown]
  - Malnutrition [Unknown]
  - Necrotising soft tissue infection [Unknown]
  - Intentional product misuse [Unknown]
  - Immunosuppression [Unknown]
